FAERS Safety Report 8376438-7 (Version None)
Quarter: 2012Q2

REPORT INFORMATION
  Report Type: 
  Country: None (occurrence: None)
  Receive Date: 20120522
  Receipt Date: 20120511
  Transmission Date: 20120825
  Serious: No
  Sender: FDA-Public Use
  Company Number: US-ASTRAZENECA-2009UW14193

PATIENT
  Sex: Female

DRUGS (4)
  1. XANAX [Concomitant]
     Indication: ANXIETY
  2. MIRALAX [Concomitant]
     Indication: FUNCTIONAL GASTROINTESTINAL DISORDER
  3. NEXIUM [Suspect]
     Indication: GASTRITIS
     Route: 048
  4. SULFADIAZINE [Concomitant]

REACTIONS (7)
  - GASTROINTESTINAL DISORDER [None]
  - WEIGHT DECREASED [None]
  - ABDOMINAL DISCOMFORT [None]
  - ROAD TRAFFIC ACCIDENT [None]
  - FATIGUE [None]
  - INJURY [None]
  - STRESS [None]
